FAERS Safety Report 25671340 (Version 1)
Quarter: 2025Q3

REPORT INFORMATION
  Report Type: Spontaneous
  Country: IN (occurrence: IN)
  Receive Date: 20250812
  Receipt Date: 20250812
  Transmission Date: 20251020
  Serious: Yes (Death, Other)
  Sender: AMGEN
  Company Number: IN-AMGEN-INDSP2025155082

PATIENT
  Age: 59 Year
  Sex: Female

DRUGS (6)
  1. FILGRASTIM [Suspect]
     Active Substance: FILGRASTIM
     Indication: Rhabdomyosarcoma recurrent
     Route: 058
  2. IFOSFAMIDE [Concomitant]
     Active Substance: IFOSFAMIDE
  3. ADRIAMYCIN [Concomitant]
     Active Substance: DOXORUBICIN HYDROCHLORIDE
  4. MESNA [Concomitant]
     Active Substance: MESNA
  5. VINCRISTINE [Concomitant]
     Active Substance: VINCRISTINE
  6. CYCLOPHOSPHAMIDE [Concomitant]
     Active Substance: CYCLOPHOSPHAMIDE

REACTIONS (6)
  - Sepsis [Fatal]
  - Acute myocardial infarction [Unknown]
  - Embryonal rhabdomyosarcoma [Unknown]
  - Metastases to liver [Unknown]
  - Metastases to lung [Unknown]
  - Loss of consciousness [Unknown]
